FAERS Safety Report 20779682 (Version 1)
Quarter: 2022Q2

REPORT INFORMATION
  Report Type: Spontaneous
  Country: US (occurrence: US)
  Receive Date: 20220503
  Receipt Date: 20220503
  Transmission Date: 20220721
  Serious: No
  Sender: FDA-Public Use
  Company Number: US-PFIZER INC-202200165862

PATIENT
  Age: 64 Year
  Sex: Male

DRUGS (2)
  1. INLYTA [Suspect]
     Active Substance: AXITINIB
     Dosage: 5 MG, 2X/DAY
     Dates: start: 20220117
  2. INLYTA [Suspect]
     Active Substance: AXITINIB
     Dosage: 5 MG, 1X/DAY
     Dates: start: 2022

REACTIONS (10)
  - Hyperkeratosis [Not Recovered/Not Resolved]
  - Tenderness [Not Recovered/Not Resolved]
  - Fatigue [Unknown]
  - Blister [Unknown]
  - Skin exfoliation [Unknown]
  - Swelling [Unknown]
  - Hair colour changes [Unknown]
  - Alopecia [Unknown]
  - Taste disorder [Recovering/Resolving]
  - Aphonia [Unknown]

NARRATIVE: CASE EVENT DATE: 20220101
